FAERS Safety Report 8253398-0 (Version None)
Quarter: 2012Q2

REPORT INFORMATION
  Report Type: 
  Country: None (occurrence: None)
  Receive Date: 20120402
  Receipt Date: 20120330
  Transmission Date: 20120825
  Serious: Yes (Life-Threatening, Other)
  Sender: FDA-Public Use
  Company Number: CA-ABBOTT-12P-028-0907497-00

PATIENT
  Age: 45 Year
  Sex: Female

DRUGS (1)
  1. BIAXIN [Suspect]
     Indication: BRONCHITIS
     Route: 048
     Dates: start: 20110406

REACTIONS (4)
  - SWOLLEN TONGUE [None]
  - ANAPHYLACTIC REACTION [None]
  - URTICARIA [None]
  - LOSS OF CONSCIOUSNESS [None]
